FAERS Safety Report 6905252-1 (Version None)
Quarter: 2010Q3

REPORT INFORMATION
  Report Type: 
  Country: None (occurrence: None)
  Receive Date: 20100804
  Receipt Date: 20100726
  Transmission Date: 20110219
  Serious: Yes (Other)
  Sender: FDA-Public Use
  Company Number: US-JNJFOC-20100708444

PATIENT
  Age: 54 Year
  Sex: Female
  Weight: 47.63 kg

DRUGS (1)
  1. DURAGESIC-100 [Suspect]
     Indication: BONE PAIN
     Route: 062

REACTIONS (5)
  - CONCUSSION [None]
  - EATING DISORDER [None]
  - KIDNEY INFECTION [None]
  - PYREXIA [None]
  - SEPSIS [None]
